FAERS Safety Report 7402598-8 (Version None)
Quarter: 2011Q2

REPORT INFORMATION
  Report Type: 
  Country: None (occurrence: None)
  Receive Date: 20110408
  Receipt Date: 20110404
  Transmission Date: 20111010
  Serious: Yes (Hospitalization)
  Sender: FDA-Public Use
  Company Number: PL-TYCO HEALTHCARE/MALLINCKRODT-T201100690

PATIENT
  Sex: Female

DRUGS (1)
  1. OPTIRAY 350 [Suspect]
     Indication: COMPUTERISED TOMOGRAM
     Dosage: 70 ML, SINGLE
     Route: 042
     Dates: start: 20110311, end: 20110311

REACTIONS (1)
  - DERMATITIS ALLERGIC [None]
